FAERS Safety Report 11625611 (Version 6)
Quarter: 2018Q1

REPORT INFORMATION
  Report Type: Spontaneous
  Country: US (occurrence: US)
  Receive Date: 20151013
  Receipt Date: 20180319
  Transmission Date: 20180508
  Serious: Yes (Hospitalization)
  Sender: FDA-Public Use
  Company Number: US-ACTELION PHARMACEUTICALS US, INC.-A-US2015-114361

PATIENT
  Age: 51 Year
  Sex: Female
  Weight: 65.31 kg

DRUGS (5)
  1. VELETRI [Suspect]
     Active Substance: EPOPROSTENOL
     Indication: PULMONARY HYPERTENSION
     Dosage: 11 NG/KG, PER MIN
     Route: 042
  2. COUMADIN [Concomitant]
     Active Substance: WARFARIN SODIUM
  3. VELETRI [Suspect]
     Active Substance: EPOPROSTENOL
     Dosage: 13 NG/KG, PER MIN
     Route: 042
     Dates: start: 20100805
  4. SILDENAFIL. [Suspect]
     Active Substance: SILDENAFIL
     Indication: PRODUCT USED FOR UNKNOWN INDICATION
     Route: 065
  5. LETAIRIS [Concomitant]
     Active Substance: AMBRISENTAN

REACTIONS (21)
  - Palpitations [Not Recovered/Not Resolved]
  - Muscular weakness [Unknown]
  - Skin lesion [Unknown]
  - Vomiting [Unknown]
  - Dyspnoea [Not Recovered/Not Resolved]
  - Acne [Unknown]
  - Nausea [Unknown]
  - Diarrhoea [Unknown]
  - Chest pain [Unknown]
  - Drug ineffective [Unknown]
  - Colon neoplasm [Unknown]
  - Polyp [Unknown]
  - Medication error [Unknown]
  - Malaise [Unknown]
  - Flushing [Unknown]
  - Tinnitus [Unknown]
  - Blister [Unknown]
  - Headache [Unknown]
  - Dyspnoea exertional [Unknown]
  - Pain in jaw [Unknown]
  - Vision blurred [Unknown]

NARRATIVE: CASE EVENT DATE: 20150304
